FAERS Safety Report 5814503-6 (Version None)
Quarter: 2008Q3

REPORT INFORMATION
  Report Type: 
  Country: None (occurrence: None)
  Receive Date: 20080718
  Receipt Date: 20080709
  Transmission Date: 20090109
  Serious: Yes (Other)
  Sender: FDA-Public Use
  Company Number: AU-ABBOTT-08P-008-0462012-00

PATIENT
  Age: 82 Year
  Sex: Female

DRUGS (4)
  1. EPILIM [Suspect]
     Indication: PETIT MAL EPILEPSY
  2. EPILIM [Suspect]
     Indication: NEURALGIA
     Dosage: DOSAGE INCREASED
  3. EPILIM [Suspect]
     Indication: MIGRAINE
  4. DONEPEZIL HCL [Interacting]
     Indication: DRUG USE FOR UNKNOWN INDICATION

REACTIONS (2)
  - DEMENTIA [None]
  - DRUG INTERACTION [None]
